FAERS Safety Report 5255234-3 (Version None)
Quarter: 2007Q1

REPORT INFORMATION
  Report Type: 
  Country: None (occurrence: None)
  Receive Date: 20070305
  Receipt Date: 20070226
  Transmission Date: 20070707
  Serious: Yes (Hospitalization)
  Sender: FDA-Public Use
  Company Number: US-BRISTOL-MYERS SQUIBB COMPANY-13634449

PATIENT
  Age: 60 Year
  Sex: Male

DRUGS (18)
  1. CISPLATIN [Suspect]
     Indication: OESOPHAGEAL ADENOCARCINOMA
     Route: 041
     Dates: start: 20061216, end: 20061216
  2. FLUOROURACIL [Suspect]
     Indication: OESOPHAGEAL ADENOCARCINOMA
     Route: 041
     Dates: start: 20061221, end: 20061221
  3. METFORMIN HCL [Concomitant]
     Indication: DIABETES MELLITUS
     Route: 048
  4. COUMADIN [Concomitant]
     Indication: ANTICOAGULANT THERAPY
     Route: 048
  5. NORVASC [Concomitant]
     Indication: BLOOD PRESSURE
     Route: 048
  6. AMBIEN [Concomitant]
     Indication: INSOMNIA
     Route: 048
  7. LASIX [Concomitant]
     Indication: BLOOD PRESSURE
     Route: 048
  8. NEURONTIN [Concomitant]
     Indication: NEUROPATHY
     Route: 048
  9. INSULIN [Concomitant]
     Indication: DIABETES MELLITUS
     Route: 058
  10. GLYBURIDE [Concomitant]
     Indication: DIABETES MELLITUS
     Route: 048
  11. SPIRONOLACTONE [Concomitant]
     Indication: HYPERTENSION
     Route: 048
  12. DURAGESIC [Concomitant]
     Indication: PAIN
     Route: 062
  13. HYDROCODONE [Concomitant]
     Indication: PAIN
     Route: 048
  14. LIPITOR [Concomitant]
     Indication: HYPERLIPIDAEMIA
     Route: 048
  15. ENALAPRIL MALEATE [Concomitant]
     Indication: HYPERTENSION
     Route: 048
  16. EMEND [Concomitant]
     Indication: PROPHYLAXIS OF NAUSEA AND VOMITING
     Route: 048
  17. DEXAMETHASONE [Concomitant]
     Indication: PROPHYLAXIS OF NAUSEA AND VOMITING
     Route: 048
  18. FAMVIR [Concomitant]

REACTIONS (1)
  - RENAL FAILURE ACUTE [None]
